FAERS Safety Report 16218952 (Version 8)
Quarter: 2022Q1

REPORT INFORMATION
  Report Type: Spontaneous
  Country: US (occurrence: US)
  Receive Date: 20190419
  Receipt Date: 20220221
  Transmission Date: 20220424
  Serious: Yes (Hospitalization, Other)
  Sender: FDA-Public Use
  Company Number: US-PFIZER INC-2019168045

PATIENT
  Age: 84 Year
  Sex: Female
  Weight: 54 kg

DRUGS (5)
  1. TOVIAZ [Suspect]
     Active Substance: FESOTERODINE FUMARATE
     Indication: Bladder disorder
     Dosage: 8 MG
  2. TOVIAZ [Suspect]
     Active Substance: FESOTERODINE FUMARATE
     Dosage: 4 MG (8 MG WAS SPLITTING IN HALF)
  3. TOVIAZ [Suspect]
     Active Substance: FESOTERODINE FUMARATE
     Dosage: 4 MG, DAILY (STRENGTH: 8 MG, CUT IN HALF)
     Route: 048
  4. LEXAPRO [Concomitant]
     Active Substance: ESCITALOPRAM OXALATE
     Indication: Depression
     Dosage: 20 MG, DAILY (20 MG BY MOUTH EACH DAY)
     Route: 048
     Dates: start: 2008
  5. MEMANTINE [Concomitant]
     Active Substance: MEMANTINE
     Indication: Dementia
     Dosage: 10 MG, 2X/DAY [10 MG BY MOUTH TWICE PER DAY]
     Route: 048
     Dates: start: 2008

REACTIONS (5)
  - Hip fracture [Unknown]
  - Dysuria [Unknown]
  - Drug ineffective [Unknown]
  - Expired product administered [Unknown]
  - Wrong technique in product usage process [Unknown]
